FAERS Safety Report 18321673 (Version 1)
Quarter: 2020Q3

REPORT INFORMATION
  Report Type: Spontaneous
  Country: US (occurrence: US)
  Receive Date: 20200929
  Receipt Date: 20200929
  Transmission Date: 20201103
  Serious: Yes (Other)
  Sender: FDA-Public Use
  Company Number: US-ROCHE-2685336

PATIENT
  Sex: Female
  Weight: 66.74 kg

DRUGS (5)
  1. LEUCOVORIN. [Concomitant]
     Active Substance: LEUCOVORIN
     Indication: SMALL INTESTINE CARCINOMA
     Dates: start: 201506, end: 201603
  2. FLUOROURACIL 5 FU [Concomitant]
     Active Substance: FLUOROURACIL
     Indication: SMALL INTESTINE CARCINOMA
     Dates: start: 201506, end: 201603
  3. AVASTIN [Suspect]
     Active Substance: BEVACIZUMAB
     Dosage: 5FU LEUCOVORIN WITH AVASTIN
     Route: 065
     Dates: start: 201510, end: 201603
  4. IRINOTECAN [Concomitant]
     Active Substance: IRINOTECAN
     Indication: SMALL INTESTINE CARCINOMA
     Dates: start: 201506, end: 201610
  5. AVASTIN [Suspect]
     Active Substance: BEVACIZUMAB
     Indication: SMALL INTESTINE CARCINOMA
     Dosage: FOLFIRI WITH AVASTIN
     Route: 065
     Dates: start: 201506, end: 201510

REACTIONS (3)
  - Neoplasm progression [Recovered/Resolved]
  - Off label use [Unknown]
  - Intentional product use issue [Unknown]
